FAERS Safety Report 5127481-2 (Version None)
Quarter: 2006Q4

REPORT INFORMATION
  Report Type: 
  Country: None (occurrence: None)
  Receive Date: 20061016
  Receipt Date: 20061003
  Transmission Date: 20070319
  Serious: Yes (Other)
  Sender: FDA-Public Use
  Company Number: PHEH2006US12471

PATIENT
  Sex: Female

DRUGS (2)
  1. FEMARA [Suspect]
     Indication: BREAST CANCER
     Dosage: 2.5 MG, QD
     Route: 048
     Dates: end: 20060901
  2. FEMARA [Suspect]
     Dosage: 2.5 MG, QD
     Route: 048
     Dates: start: 20060901, end: 20060901

REACTIONS (4)
  - ARTHRALGIA [None]
  - INFLAMMATION [None]
  - RHEUMATOID ARTHRITIS [None]
  - RHEUMATOID FACTOR [None]
